FAERS Safety Report 5159472-X (Version None)
Quarter: 2006Q4

REPORT INFORMATION
  Report Type: 
  Country: None (occurrence: None)
  Receive Date: 20061122
  Receipt Date: 20061122
  Transmission Date: 20070319
  Serious: Yes (Other)
  Sender: FDA-Public Use
  Company Number: None

PATIENT
  Age: 71 Year
  Sex: Female

DRUGS (3)
  1. LIPITOR [Suspect]
     Indication: HYPERLIPIDAEMIA
     Dosage: ORAL;40.0 MILLIGRAM
     Route: 048
     Dates: start: 20060314, end: 20060606
  2. ZETIA [Suspect]
     Indication: HYPERLIPIDAEMIA
     Dosage: ORAL;10.0 MILLIGRAM
     Route: 048
     Dates: start: 20030610, end: 20060606
  3. ASPIRIN [Concomitant]

REACTIONS (2)
  - BLOOD CREATINE PHOSPHOKINASE INCREASED [None]
  - MYOPATHY [None]
